FAERS Safety Report 17710200 (Version 3)
Quarter: 2020Q2

REPORT INFORMATION
  Report Type: Spontaneous
  Country: US (occurrence: US)
  Receive Date: 20200427
  Receipt Date: 20200429
  Transmission Date: 20200714
  Serious: No
  Sender: FDA-Public Use
  Company Number: US-SA-2020SA070535

PATIENT
  Age: 58 Year
  Sex: Female

DRUGS (1)
  1. LANTUS SOLOSTAR [Suspect]
     Active Substance: INSULIN GLARGINE
     Indication: TYPE 2 DIABETES MELLITUS
     Dosage: 43 IU, QD
     Route: 065
     Dates: start: 2005

REACTIONS (4)
  - Incorrect dose administered by device [Unknown]
  - Blood glucose abnormal [Unknown]
  - Device delivery system issue [Unknown]
  - Device issue [Unknown]
